FAERS Safety Report 15011210 (Version 4)
Quarter: 2018Q3

REPORT INFORMATION
  Report Type: Spontaneous
  Country: US (occurrence: US)
  Receive Date: 20180614
  Receipt Date: 20180830
  Transmission Date: 20181010
  Serious: Yes (Death, Hospitalization)
  Sender: FDA-Public Use
  Company Number: US-JNJFOC-20180615829

PATIENT
  Age: 92 Year
  Sex: Male
  Weight: 75 kg

DRUGS (4)
  1. ZYTIGA [Suspect]
     Active Substance: ABIRATERONE ACETATE
     Indication: PRODUCT USED FOR UNKNOWN INDICATION
     Dosage: STRENGTH 250 MG
     Route: 048
     Dates: start: 20170712, end: 20170815
  2. LUPRON [Concomitant]
     Active Substance: LEUPROLIDE ACETATE
     Route: 065
  3. AMITIZA [Suspect]
     Active Substance: LUBIPROSTONE
     Indication: CONSTIPATION
     Route: 065
     Dates: start: 20170815
  4. ASA [Concomitant]
     Active Substance: ASPIRIN
     Route: 065

REACTIONS (4)
  - Disease progression [Unknown]
  - Diarrhoea [Recovered/Resolved]
  - Malignant peritoneal neoplasm [Fatal]
  - Constipation [Unknown]

NARRATIVE: CASE EVENT DATE: 20170822
